FAERS Safety Report 4617105-2 (Version None)
Quarter: 2005Q1

REPORT INFORMATION
  Report Type: 
  Country: None (occurrence: None)
  Receive Date: 20050323
  Receipt Date: 20050314
  Transmission Date: 20050727
  Serious: Yes (Other)
  Sender: FDA-Public Use
  Company Number: FR-ROCHE-398770

PATIENT
  Age: 65 Year
  Sex: Female

DRUGS (2)
  1. PEGASYS [Suspect]
     Indication: HEPATITIS C
     Dosage: FORM: INJECTABLE SOLUTION
     Route: 058
  2. REBETOL [Concomitant]
     Indication: HEPATITIS C
     Route: 048

REACTIONS (2)
  - ALOPECIA [None]
  - RETINITIS [None]
